FAERS Safety Report 9060819 (Version 1)
Quarter: 2013Q1

REPORT INFORMATION
  Report Type: Spontaneous
  Country: US (occurrence: US)
  Receive Date: 20130204
  Receipt Date: 20130204
  Transmission Date: 20140127
  Serious: No
  Sender: FDA-Public Use
  Company Number: US-009507513-1301USA014524

PATIENT
  Sex: Male

DRUGS (1)
  1. SINGULAIR [Suspect]
     Dosage: 5 MG, QD
     Route: 048
     Dates: start: 201101

REACTIONS (2)
  - Product taste abnormal [Unknown]
  - Product quality issue [Unknown]
